FAERS Safety Report 7167336-5 (Version None)
Quarter: 2010Q4

REPORT INFORMATION
  Report Type: 
  Country: None (occurrence: None)
  Receive Date: 20101216
  Receipt Date: 20101207
  Transmission Date: 20110411
  Serious: Yes (Death)
  Sender: FDA-Public Use
  Company Number: JP-BRISTOL-MYERS SQUIBB COMPANY-15435977

PATIENT
  Age: 1 Decade
  Sex: Male

DRUGS (3)
  1. CARBOPLATIN [Suspect]
     Indication: NEUROBLASTOMA
     Route: 041
  2. MELPHALAN [Suspect]
     Indication: NEUROBLASTOMA
  3. ETOPOSIDE [Suspect]
     Indication: NEUROBLASTOMA

REACTIONS (1)
  - PULMONARY OEDEMA [None]
